FAERS Safety Report 17578855 (Version 1)
Quarter: 2020Q1

REPORT INFORMATION
  Report Type: Report from Study
  Country: US (occurrence: US)
  Receive Date: 20200324
  Receipt Date: 20200324
  Transmission Date: 20200409
  Serious: Yes (Hospitalization)
  Sender: FDA-Public Use
  Company Number: US-ACTELION-A-NJ2019-196470

PATIENT
  Sex: Male
  Weight: 80.27 kg

DRUGS (3)
  1. OPSUMIT [Suspect]
     Active Substance: MACITENTAN
     Indication: PULMONARY ARTERIAL HYPERTENSION
     Dosage: 10 MG, QD
     Route: 048
  2. TADALAFIL. [Concomitant]
     Active Substance: TADALAFIL
  3. WARFARIN [Concomitant]
     Active Substance: WARFARIN

REACTIONS (12)
  - Umbilical hernia repair [Unknown]
  - Therapy non-responder [Unknown]
  - Dyspnoea [Not Recovered/Not Resolved]
  - Weight control [Unknown]
  - Unevaluable event [Unknown]
  - Fluid retention [Unknown]
  - Decreased appetite [Unknown]
  - Peripheral swelling [Unknown]
  - Back pain [Unknown]
  - Periorbital swelling [Unknown]
  - Headache [Unknown]
  - Weight decreased [Unknown]
